FAERS Safety Report 6629649-2 (Version None)
Quarter: 2010Q1

REPORT INFORMATION
  Report Type: 
  Country: None (occurrence: None)
  Receive Date: 20100311
  Receipt Date: 20100302
  Transmission Date: 20100710
  Serious: Yes (Hospitalization, Other)
  Sender: FDA-Public Use
  Company Number: US-JNJCH-2010006051

PATIENT
  Age: 81 Year
  Sex: Male

DRUGS (3)
  1. ASPIRIN [Suspect]
     Indication: CORONARY ARTERY DISEASE
     Dosage: TEXT:UNKNOWN
     Route: 048
  2. CLOPIDOGREL [Suspect]
     Indication: CORONARY ARTERY DISEASE
     Dosage: TEXT:UNKNOWN
     Route: 048
  3. VENLAFAXINE [Suspect]
     Indication: DEPRESSION
     Dosage: TEXT:UNKNOWN
     Route: 048

REACTIONS (3)
  - CHEST DISCOMFORT [None]
  - GASTROINTESTINAL HAEMORRHAGE [None]
  - SEROTONIN SYNDROME [None]
